FAERS Safety Report 9379950 (Version 1)
Quarter: 2013Q3

REPORT INFORMATION
  Report Type: Report from Study
  Country: CA (occurrence: CA)
  Receive Date: 20130702
  Receipt Date: 20130702
  Transmission Date: 20140515
  Serious: Yes (Other)
  Sender: FDA-Public Use
  Company Number: CA-JNJFOC-20130616965

PATIENT
  Age: 61 Year
  Sex: Male
  Weight: 86.4 kg

DRUGS (6)
  1. REMICADE [Suspect]
     Indication: ANKYLOSING SPONDYLITIS
     Route: 042
     Dates: start: 200406
  2. REMICADE [Suspect]
     Indication: RHEUMATOID ARTHRITIS
     Route: 042
     Dates: start: 200406
  3. PREDNISONE [Concomitant]
     Route: 065
  4. DIOVAN [Concomitant]
     Route: 065
  5. NORVASC [Concomitant]
     Route: 065
  6. EZETROL [Concomitant]
     Route: 065

REACTIONS (1)
  - Nephrolithiasis [Recovering/Resolving]
